FAERS Safety Report 10902447 (Version 1)
Quarter: 2015Q1

REPORT INFORMATION
  Report Type: Spontaneous
  Country: MX (occurrence: MX)
  Receive Date: 20150310
  Receipt Date: 20150310
  Transmission Date: 20150721
  Serious: Yes (Hospitalization)
  Sender: FDA-Public Use
  Company Number: MX-009507513-1503MEX004074

PATIENT
  Age: 17 Year
  Sex: Female

DRUGS (1)
  1. IMPLANON [Suspect]
     Active Substance: ETONOGESTREL
     Indication: CONTRACEPTION
     Dosage: 27-70 MCG DAILY, TRIENNIAL
     Route: 059
     Dates: start: 20130711

REACTIONS (2)
  - Adverse event [Unknown]
  - Unintended pregnancy [Unknown]
